FAERS Safety Report 7309100-X (Version None)
Quarter: 2011Q1

REPORT INFORMATION
  Report Type: 
  Country: None (occurrence: None)
  Receive Date: 20110223
  Receipt Date: 20110215
  Transmission Date: 20110831
  Serious: Yes (Hospitalization, Other)
  Sender: FDA-Public Use
  Company Number: US-PFIZER INC-2010152735

PATIENT
  Sex: Female

DRUGS (15)
  1. LOVASTATIN [Concomitant]
     Dosage: 20 MG
  2. CHANTIX [Suspect]
     Dosage: 5 UNK, 2X/DAY
     Route: 048
     Dates: start: 20101112, end: 20101118
  3. ABILIFY [Concomitant]
     Dosage: 2 MG, 2X/DAY
  4. ALBUTEROL [Concomitant]
  5. GABAPENTIN [Concomitant]
     Indication: FIBROMYALGIA
  6. LYRICA [Concomitant]
     Indication: CONVULSION
     Dosage: 50 MG, 3X/DAY
  7. LYRICA [Concomitant]
     Indication: FIBROMYALGIA
  8. BACLOFEN [Concomitant]
     Dosage: 10 MG, 2X/DAY
  9. CHANTIX [Suspect]
     Indication: SMOKING CESSATION THERAPY
     Dosage: UNK
     Route: 048
     Dates: start: 20101112, end: 20101201
  10. SINGULAIR [Concomitant]
     Dosage: 10 MG, 1X/DAY
  11. ADVAIR HFA [Concomitant]
     Dosage: UNK
  12. DURAGESIC-50 [Concomitant]
     Dosage: 20 UG, MON, THURS.
  13. SAVELLA [Concomitant]
     Dosage: UNK
  14. CYMBALTA [Concomitant]
     Dosage: 60 MG, 2X/DAY
  15. GABAPENTIN [Concomitant]
     Indication: CONVULSION
     Dosage: 300 MG, 3X/DAY

REACTIONS (11)
  - MEMORY IMPAIRMENT [None]
  - CONVULSION [None]
  - FALL [None]
  - BLOOD IMMUNOGLOBULIN G DECREASED [None]
  - HALLUCINATION [None]
  - AGITATION [None]
  - EPISTAXIS [None]
  - PNEUMONIA [None]
  - ELECTROENCEPHALOGRAM ABNORMAL [None]
  - WHITE BLOOD CELL COUNT INCREASED [None]
  - IMMUNODEFICIENCY [None]
